FAERS Safety Report 14618253 (Version 2)
Quarter: 2018Q2

REPORT INFORMATION
  Report Type: Spontaneous
  Country: US (occurrence: US)
  Receive Date: 20180309
  Receipt Date: 20180606
  Transmission Date: 20180711
  Serious: No
  Sender: FDA-Public Use
  Company Number: US-PTC THERAPEUTICS, INC.-US-2018PTC000108

PATIENT

DRUGS (1)
  1. EMFLAZA [Suspect]
     Active Substance: DEFLAZACORT
     Indication: DUCHENNE MUSCULAR DYSTROPHY
     Dosage: 12 MG, QD
     Route: 048
     Dates: start: 20170801

REACTIONS (8)
  - Fatigue [Unknown]
  - Malaise [Unknown]
  - Weight increased [Unknown]
  - Pyrexia [Unknown]
  - Flushing [Unknown]
  - Insomnia [Unknown]
  - Mood altered [Unknown]
  - Mood swings [Unknown]

NARRATIVE: CASE EVENT DATE: 201708
